FAERS Safety Report 9165836 (Version 1)
Quarter: 2013Q1

REPORT INFORMATION
  Report Type: Spontaneous
  Country: US (occurrence: None)
  Receive Date: 20130314
  Receipt Date: 20130314
  Transmission Date: 20140127
  Serious: No
  Sender: FDA-Public Use
  Company Number: None

PATIENT
  Age: 56 Year
  Sex: Male
  Weight: 91.63 kg

DRUGS (2)
  1. ABILIFY [Suspect]
     Indication: MOOD SWINGS
     Route: 048
     Dates: start: 20130111
  2. ABILIFY [Suspect]
     Indication: DELUSION
     Route: 048
     Dates: start: 20130111

REACTIONS (2)
  - Rash [None]
  - Rash [None]
